FAERS Safety Report 6510484-0 (Version None)
Quarter: 2009Q4

REPORT INFORMATION
  Report Type: 
  Country: None (occurrence: None)
  Receive Date: 20091221
  Receipt Date: 20091221
  Transmission Date: 20100525
  Serious: Yes (Hospitalization)
  Sender: FDA-Public Use
  Company Number: None

PATIENT
  Age: 86 Year
  Sex: Female
  Weight: 30.391 kg

DRUGS (3)
  1. WARFARIN SODIUM [Suspect]
     Indication: ATRIAL FIBRILLATION
     Dosage: DAILY PO
     Route: 048
  2. INDOMETHACIN [Suspect]
     Indication: GOUT
     Route: 048
  3. ASPIRIN [Suspect]
     Indication: CARDIAC DISORDER
     Dosage: 81 MG DAILY PO
     Route: 048

REACTIONS (5)
  - DIZZINESS [None]
  - DYSPNOEA EXERTIONAL [None]
  - FALL [None]
  - HAEMATOCHEZIA [None]
  - SYNCOPE [None]
